FAERS Safety Report 17550347 (Version 1)
Quarter: 2020Q1

REPORT INFORMATION
  Report Type: Spontaneous
  Country: FR (occurrence: FR)
  Receive Date: 20200317
  Receipt Date: 20200317
  Transmission Date: 20200409
  Serious: Yes (Other)
  Sender: FDA-Public Use
  Company Number: FR-MYLANLABS-2020M1027097

PATIENT
  Age: 71 Year
  Sex: Female
  Weight: 82.5 kg

DRUGS (2)
  1. DISCOTRINE 5 MG/24 HEURES, DISPOSITIF TRANSDERMIQUE [Suspect]
     Active Substance: NITROGLYCERIN
     Indication: PRODUCT USED FOR UNKNOWN INDICATION
     Dosage: UNK (1 PATCH PAR JOUR PENDANT 12H (8H ? 20H))
     Route: 062
     Dates: start: 20200114, end: 20200127
  2. TERLIPRESSINE                      /00692902/ [Suspect]
     Active Substance: TERLIPRESSIN
     Indication: CIRRHOSIS ALCOHOLIC
     Dosage: UNK
     Route: 041
     Dates: start: 20200113, end: 20200128

REACTIONS (1)
  - Thrombocytopenia [Recovered/Resolved]

NARRATIVE: CASE EVENT DATE: 20200115
